FAERS Safety Report 23368409 (Version 1)
Quarter: 2024Q1

REPORT INFORMATION
  Report Type: Spontaneous
  Country: TR (occurrence: TR)
  Receive Date: 20240105
  Receipt Date: 20240105
  Transmission Date: 20240409
  Serious: Yes (Other)
  Sender: FDA-Public Use
  Company Number: TR-TOLMAR, INC.-23TR045357

PATIENT
  Age: 59 Year
  Sex: Male

DRUGS (6)
  1. ELIGARD [Suspect]
     Active Substance: LEUPROLIDE ACETATE
     Indication: Prostate cancer
     Dosage: UNK
     Dates: start: 2019
  2. ELIGARD [Suspect]
     Active Substance: LEUPROLIDE ACETATE
     Indication: Prostate cancer
     Dosage: UNK
  3. BICALUTAMIDE [Suspect]
     Active Substance: BICALUTAMIDE
     Indication: Prostate cancer
     Dosage: UNK
     Dates: start: 2019
  4. ZOLEDRONIC ACID [Suspect]
     Active Substance: ZOLEDRONIC ACID
     Indication: Prostate cancer
     Dosage: UNK
     Dates: start: 2019
  5. DOCETAXEL [Suspect]
     Active Substance: DOCETAXEL\DOCETAXEL ANHYDROUS
     Indication: Prostate cancer
     Dosage: UNK
     Dates: start: 201905
  6. ENZALUTAMIDE [Suspect]
     Active Substance: ENZALUTAMIDE
     Indication: Prostate cancer
     Dosage: UNK
     Dates: start: 201910

REACTIONS (5)
  - Myocardial infarction [Recovered/Resolved]
  - Prostate cancer [Recovered/Resolved]
  - Metastases to bone [Recovered/Resolved]
  - Back pain [Recovered/Resolved]
  - Prostatic specific antigen abnormal [Recovered/Resolved]

NARRATIVE: CASE EVENT DATE: 20190101
